FAERS Safety Report 25359531 (Version 1)
Quarter: 2025Q2

REPORT INFORMATION
  Report Type: Spontaneous
  Country: JP (occurrence: JP)
  Receive Date: 20250526
  Receipt Date: 20250526
  Transmission Date: 20250716
  Serious: Yes (Other)
  Sender: SANDOZ
  Company Number: JP-asahikaseip-2025-AER-02979

PATIENT
  Age: 83 Year
  Sex: Female

DRUGS (1)
  1. RECLAST [Suspect]
     Active Substance: ZOLEDRONIC ACID
     Indication: Product used for unknown indication
     Route: 041
     Dates: start: 20240516

REACTIONS (3)
  - Lumbar vertebral fracture [Unknown]
  - Physical deconditioning [Unknown]
  - Vertigo [Unknown]

NARRATIVE: CASE EVENT DATE: 20250401
